FAERS Safety Report 7130434-6 (Version None)
Quarter: 2010Q4

REPORT INFORMATION
  Report Type: 
  Country: None (occurrence: None)
  Receive Date: 20101116
  Receipt Date: 20101108
  Transmission Date: 20110411
  Serious: Yes (Hospitalization)
  Sender: FDA-Public Use
  Company Number: 751536

PATIENT
  Age: 75 Year
  Sex: Female

DRUGS (2)
  1. HEPARIN SODIUM [Suspect]
     Indication: ANGINA UNSTABLE
  2. ASPIRIN [Suspect]
     Indication: ANGINA UNSTABLE

REACTIONS (5)
  - CHOLECYSTITIS CHRONIC [None]
  - GALLBLADDER CANCER [None]
  - HAEMOBILIA [None]
  - HAEMOGLOBIN DECREASED [None]
  - OCCULT BLOOD POSITIVE [None]
